FAERS Safety Report 7099595-1 (Version None)
Quarter: 2010Q4

REPORT INFORMATION
  Report Type: 
  Country: None (occurrence: None)
  Receive Date: 20101112
  Receipt Date: 20081201
  Transmission Date: 20110411
  Serious: No
  Sender: FDA-Public Use
  Company Number: US-KINGPHARMUSA00001-K200801367

PATIENT
  Age: 82 Year
  Sex: Female

DRUGS (3)
  1. LEVOXYL [Suspect]
     Indication: HYPOTHYROIDISM
     Dosage: 112 MCG, QD
     Route: 048
     Dates: start: 19980101, end: 20080701
  2. LEVOXYL [Suspect]
     Dosage: 125 MCG, QD
     Dates: start: 20080701, end: 20081001
  3. LEVOXYL [Suspect]
     Dosage: 112 MCG, QD
     Dates: start: 20081001

REACTIONS (4)
  - BLOOD THYROID STIMULATING HORMONE DECREASED [None]
  - BLOOD THYROID STIMULATING HORMONE INCREASED [None]
  - COELIAC DISEASE [None]
  - NIGHT SWEATS [None]
